FAERS Safety Report 6074875-7 (Version None)
Quarter: 2009Q1

REPORT INFORMATION
  Report Type: 
  Country: None (occurrence: None)
  Receive Date: 20090212
  Receipt Date: 20090202
  Transmission Date: 20090719
  Serious: Yes (Hospitalization)
  Sender: FDA-Public Use
  Company Number: FR-BRISTOL-MYERS SQUIBB COMPANY-14129696

PATIENT
  Age: 23 Year
  Sex: Female
  Weight: 63 kg

DRUGS (4)
  1. ABILIFY [Suspect]
     Indication: BIPOLAR I DISORDER
     Dosage: STARTED WITH 5MG,INCREASED TO 10MG,FROM 04MAR08:15MG
     Route: 048
     Dates: start: 20080229, end: 20080318
  2. NOZINAN [Suspect]
     Indication: MANIA
     Route: 048
     Dates: start: 20080229, end: 20080320
  3. SULFARLEM [Concomitant]
     Indication: MUCOSAL DRYNESS
     Route: 048
     Dates: start: 20080229, end: 20080307
  4. NICOTINE [Concomitant]
     Indication: TOBACCO ABUSE
     Dosage: TRANSDERMAL PATCH
     Route: 062
     Dates: start: 20010307

REACTIONS (2)
  - CATATONIA [None]
  - EXTRAPYRAMIDAL DISORDER [None]
